FAERS Safety Report 15223188 (Version 2)
Quarter: 2018Q3

REPORT INFORMATION
  Report Type: Spontaneous
  Country: JP (occurrence: JP)
  Receive Date: 20180731
  Receipt Date: 20180828
  Transmission Date: 20181010
  Serious: Yes (Death, Life-Threatening)
  Sender: FDA-Public Use
  Company Number: JP-CELGENEUS-JPN-20180709591

PATIENT
  Age: 70 Year
  Sex: Male

DRUGS (1)
  1. ABRAXANE [Suspect]
     Active Substance: PACLITAXEL
     Indication: SQUAMOUS CELL CARCINOMA OF LUNG
     Dosage: 100 MILLIGRAM/SQ. METER
     Route: 041

REACTIONS (2)
  - Bronchial fistula [Fatal]
  - Mediastinitis [Fatal]
